FAERS Safety Report 17982814 (Version 3)
Quarter: 2020Q3

REPORT INFORMATION
  Report Type: Spontaneous
  Country: RU (occurrence: RU)
  Receive Date: 20200706
  Receipt Date: 20200924
  Transmission Date: 20201103
  Serious: Yes (Death, Life-Threatening, Other)
  Sender: FDA-Public Use
  Company Number: RU-PFIZER INC-2020248228

PATIENT
  Age: 87 Year
  Sex: Male

DRUGS (8)
  1. AMIKACIN. [Concomitant]
     Active Substance: AMIKACIN
  2. AMPICILLIN/SULBACTAM [Concomitant]
     Active Substance: AMPICILLIN SODIUM\SULBACTAM SODIUM
  3. ASCORBIC ACID. [Concomitant]
     Active Substance: ASCORBIC ACID
  4. TOFACITINIB CITRATE [Suspect]
     Active Substance: TOFACITINIB CITRATE
     Indication: COVID-19
     Dosage: 10 MG, 1X/DAY
     Route: 048
     Dates: start: 20200505, end: 20200512
  5. LOPINAVIR + RITONAVIR [Concomitant]
     Active Substance: LOPINAVIR\RITONAVIR
  6. CEFEPIME [Concomitant]
     Active Substance: CEFEPIME HYDROCHLORIDE
  7. HYDROXYCHLOROQUINE [Concomitant]
     Active Substance: HYDROXYCHLOROQUINE
  8. ENOXAPARIN [Concomitant]
     Active Substance: ENOXAPARIN
     Indication: ANTICOAGULANT THERAPY
     Dosage: 0.8, 2X/DAY

REACTIONS (4)
  - Disease progression [Fatal]
  - Product use in unapproved indication [Fatal]
  - Off label use [Fatal]
  - Death [Fatal]

NARRATIVE: CASE EVENT DATE: 20200505
